FAERS Safety Report 14430403 (Version 1)
Quarter: 2018Q1

REPORT INFORMATION
  Report Type: Spontaneous
  Country: FR (occurrence: FR)
  Receive Date: 20180124
  Receipt Date: 20180124
  Transmission Date: 20180509
  Serious: Yes (Other)
  Sender: FDA-Public Use
  Company Number: FR-MERCK KGAA-2040656

PATIENT
  Age: 66 Year
  Sex: Female

DRUGS (5)
  1. FLECAINE [Concomitant]
     Active Substance: FLECAINIDE
  2. LYRICA [Concomitant]
     Active Substance: PREGABALIN
  3. SIFROL [Concomitant]
     Active Substance: PRAMIPEXOLE
  4. NOVOTHYROX [Suspect]
     Active Substance: LEVOTHYROXINE SODIUM
     Indication: THYROID DISORDER
     Dates: start: 2017
  5. RIVOTRIL [Concomitant]
     Active Substance: CLONAZEPAM

REACTIONS (10)
  - Creatine urine decreased [None]
  - Vasodilatation [None]
  - Abnormal weight gain [None]
  - Decreased appetite [None]
  - Polydipsia [None]
  - Bone density abnormal [None]
  - Urinary retention [None]
  - Blood urine present [None]
  - Onychomycosis [None]
  - Vein disorder [None]

NARRATIVE: CASE EVENT DATE: 2017
